FAERS Safety Report 14462178 (Version 1)
Quarter: 2018Q1

REPORT INFORMATION
  Report Type: Spontaneous
  Country: IN (occurrence: IN)
  Receive Date: 20180130
  Receipt Date: 20180130
  Transmission Date: 20180509
  Serious: Yes (Life-Threatening, Hospitalization, Other)
  Sender: FDA-Public Use
  Company Number: IN-BAUSCH-BL-2018-002413

PATIENT
  Age: 33 Year
  Sex: Female

DRUGS (4)
  1. FOLINIC ACID [Concomitant]
     Active Substance: LEUCOVORIN
     Indication: CHOLANGIOCARCINOMA
     Dosage: CYCLICAL
  2. FLUOROURACIL. [Suspect]
     Active Substance: FLUOROURACIL
     Dosage: 5-FU 1000 MG OVER 22 H; CYCLICAL
     Route: 065
  3. FLUOROURACIL. [Suspect]
     Active Substance: FLUOROURACIL
     Indication: CHOLANGIOCARCINOMA
     Dosage: 400 MG SLOW IV PUSH; CYCLICAL
     Route: 040
  4. OXALIPLATIN. [Concomitant]
     Active Substance: OXALIPLATIN
     Indication: CHOLANGIOCARCINOMA
     Dosage: CYCLICAL

REACTIONS (2)
  - Supraventricular tachycardia [Recovering/Resolving]
  - Cardiotoxicity [Recovering/Resolving]
